FAERS Safety Report 25461727 (Version 4)
Quarter: 2025Q4

REPORT INFORMATION
  Report Type: Spontaneous
  Country: JP (occurrence: JP)
  Receive Date: 20250620
  Receipt Date: 20251002
  Transmission Date: 20260118
  Serious: No
  Sender: BRISTOL-MYERS SQUIBB COMPANY
  Company Number: JP-BRISTOL-MYERS SQUIBB COMPANY-2025-085713

PATIENT
  Age: 82 Year
  Sex: Female
  Weight: 51 kg

DRUGS (9)
  1. YERVOY [Suspect]
     Active Substance: IPILIMUMAB
     Indication: Non-small cell lung cancer
     Dates: start: 20211008, end: 20230206
  2. OPDIVO [Suspect]
     Active Substance: NIVOLUMAB
     Indication: Non-small cell lung cancer
     Dates: start: 20211008, end: 20230227
  3. MIYA-BM [Concomitant]
     Active Substance: CLOSTRIDIUM BUTYRICUM SPORES STRAIN M-55
     Indication: Product used for unknown indication
     Dosage: AFTER BREAKFAST, NOON, AND DINNER
  4. FAMOTIDINE [Concomitant]
     Active Substance: FAMOTIDINE
     Indication: Product used for unknown indication
     Dosage: AFTER DINNER
  5. POTASSIUM CHLORIDE SR ST [Concomitant]
     Indication: Product used for unknown indication
     Dosage: AFTER BREAKFAST
  6. DEPRODONE PROPIONATE [Concomitant]
     Active Substance: DEPRODONE PROPIONATE
     Indication: Pruritus
     Dosage: AFTER BATHING, ITCHY PLACES OTHER THAN THE FACE
  7. HEPARINOID [Concomitant]
     Indication: Prophylaxis
     Dosage: IN THE MORNING, BEFORE SLEEPING
  8. WHITE PETROLATUM [Concomitant]
     Active Substance: PETROLATUM
     Indication: Product used for unknown indication
     Dosage: AFTER BATHING
  9. FEXOFENADINE HYDROCHLORIDE [Concomitant]
     Active Substance: FEXOFENADINE HYDROCHLORIDE
     Indication: Product used for unknown indication
     Dosage: BEFORE SLEEPING

REACTIONS (2)
  - Renal disorder [Recovering/Resolving]
  - Condition aggravated [Recovering/Resolving]

NARRATIVE: CASE EVENT DATE: 20230320
